FAERS Safety Report 4402913-3 (Version None)
Quarter: 2004Q3

REPORT INFORMATION
  Report Type: 
  Country: None (occurrence: None)
  Receive Date: 20040721
  Receipt Date: 20010711
  Transmission Date: 20050211
  Serious: No
  Sender: FDA-Public Use
  Company Number: US-GLAXOSMITHKLINE-A0154432A

PATIENT
  Age: 40 Year
  Sex: Female
  Weight: 61.4 kg

DRUGS (2)
  1. IMITREX [Suspect]
     Indication: MIGRAINE
     Dosage: 50MG AS REQUIRED
     Route: 048
     Dates: start: 19960101
  2. EXCEDRIN (MIGRAINE) [Concomitant]
     Route: 048

REACTIONS (3)
  - FEELING HOT AND COLD [None]
  - NAUSEA [None]
  - SOMNOLENCE [None]
